FAERS Safety Report 5475672-3 (Version None)
Quarter: 2007Q4

REPORT INFORMATION
  Report Type: 
  Country: None (occurrence: None)
  Receive Date: 20071001
  Receipt Date: 20070921
  Transmission Date: 20080405
  Serious: Yes (Hospitalization)
  Sender: FDA-Public Use
  Company Number: 20074121

PATIENT
  Sex: Male

DRUGS (1)
  1. LIORESAL [Suspect]
     Indication: MUSCLE SPASMS
     Dosage: 423.7 MCG, DAILY, INTRATHECAL
     Route: 037

REACTIONS (7)
  - ABASIA [None]
  - CONDITION AGGRAVATED [None]
  - DEVICE FAILURE [None]
  - FALL [None]
  - FATIGUE [None]
  - MUSCLE SPASMS [None]
  - PAIN [None]
